FAERS Safety Report 12234297 (Version 1)
Quarter: 2016Q2

REPORT INFORMATION
  Report Type: Spontaneous
  Country: US (occurrence: None)
  Receive Date: 20160401
  Receipt Date: 20160401
  Transmission Date: 20160815
  Serious: Yes (Other)
  Sender: FDA-Public Use
  Company Number: None

PATIENT
  Age: 55 Year
  Sex: Male

DRUGS (1)
  1. AMLODIPINE/BENZAPRIL CAPS - 5/10MG FDR REDDYS [Suspect]
     Active Substance: AMLODIPINE BESYLATE\BENAZEPRIL HYDROCHLORIDE
     Route: 048

REACTIONS (2)
  - Product quality issue [None]
  - Blood pressure increased [None]

NARRATIVE: CASE EVENT DATE: 20151225
